FAERS Safety Report 24215532 (Version 1)
Quarter: 2024Q3

REPORT INFORMATION
  Report Type: Spontaneous
  Country: ZA (occurrence: None)
  Receive Date: 20240816
  Receipt Date: 20240816
  Transmission Date: 20241016
  Serious: Yes (Death, Other)
  Sender: ASTRAZENECA
  Company Number: 2024A184790

PATIENT
  Age: 77 Year
  Sex: Male

DRUGS (4)
  1. BUDESONIDE\FORMOTEROL [Suspect]
     Active Substance: BUDESONIDE\FORMOTEROL
     Indication: Emphysema
     Dosage: 120 DOSE 160/4.5 MCG; 120 UG; UNKNOWN UNKNOWN
     Route: 055
  2. MEDROL [Concomitant]
     Active Substance: METHYLPREDNISOLONE
     Dosage: 16.0MG UNKNOWN
     Route: 048
  3. MIBIOTIX AT [Concomitant]
     Route: 048
  4. GELATIN [Concomitant]
     Active Substance: GELATIN
     Dosage: 500.0MG UNKNOWN
     Route: 048

REACTIONS (1)
  - Neoplasm malignant [Fatal]
